FAERS Safety Report 21358035 (Version 1)
Quarter: 2022Q3

REPORT INFORMATION
  Report Type: Spontaneous
  Country: PK (occurrence: PK)
  Receive Date: 20220921
  Receipt Date: 20220921
  Transmission Date: 20221027
  Serious: Yes (Hospitalization)
  Sender: FDA-Public Use
  Company Number: PK-PFIZER INC-2019481042

PATIENT
  Age: 27 Year
  Sex: Female
  Weight: 58 kg

DRUGS (17)
  1. ENBREL [Suspect]
     Active Substance: ETANERCEPT
     Indication: Psoriatic arthropathy
     Dosage: 50 MILLIGRAM,  (EVERY 10 DAYS)
     Route: 058
     Dates: start: 20180324
  2. ENBREL [Suspect]
     Active Substance: ETANERCEPT
     Dosage: 50 MILLIGRAM, QWK
     Route: 058
     Dates: start: 20191105
  3. ENBREL [Suspect]
     Active Substance: ETANERCEPT
     Dosage: 50 MILLIGRAM, QWK
     Route: 058
     Dates: start: 20200117
  4. ENBREL [Suspect]
     Active Substance: ETANERCEPT
     Dosage: 50 MILLIGRAM, QWK
     Route: 058
     Dates: start: 202202
  5. NEORAL [Concomitant]
     Active Substance: CYCLOSPORINE
     Dosage: 25 MILLIGRAM, UNK
  6. NEORAL [Concomitant]
     Active Substance: CYCLOSPORINE
     Dosage: 1 MILLIGRAM  (ILLEGIBLE INFORMATION)
  7. FOLIC ACID [Concomitant]
     Active Substance: FOLIC ACID
     Dosage: 5 MILLIGRAM, QD
  8. CAC [Concomitant]
     Dosage: UNK, QD
  9. XOBIX [Concomitant]
     Dosage: 15 MILLIGRAM  (AT NIGHT AFTER MEAL AS REQUIRED)
  10. XOBIX [Concomitant]
     Dosage: 1 DOSAGE FORM  (1X TABLETS, AS NEEDED, AFTER MEAL, FOR 4 WEEKS, 1 CAP IN MORNING, BEFORE MEAL AS PER
  11. SELANZ [Concomitant]
     Dosage: 30 MILLIGRAM, UNK
  12. CAL [Concomitant]
     Dosage: UNK, QD 1000 PLUS DAILY
  13. Dolgina [Concomitant]
     Dosage: 30 MILLIGRAM, QD BEFORE BREAKFAST AS REQUIRED
  14. ESCITALOPRAM OXALATE [Concomitant]
     Active Substance: ESCITALOPRAM OXALATE
     Dosage: 10 MILLIGRAM (TAKE 1/2 TABLET IN NIGHT AT 9PM THEN TAKE 1 DAILY FOR 10DAYS)
  15. Risek [Concomitant]
     Dosage: 20 MILLIGRAM 1+0+0+0  BEFORE MEAL
  16. DICLOFENAC SODIUM [Concomitant]
     Active Substance: DICLOFENAC SODIUM
     Dosage: UNK, TID APPLY LOCALLY
  17. ALPRAZOLAM [Concomitant]
     Active Substance: ALPRAZOLAM
     Dosage: 5 MILLIGRAM HALF TABLET AT NIGHT 10 PM FOR 10DAYS

REACTIONS (10)
  - Joint swelling [Unknown]
  - Cough [Unknown]
  - Influenza [Unknown]
  - Iron deficiency anaemia [Unknown]
  - Arthralgia [Unknown]
  - Off label use [Unknown]
  - Musculoskeletal stiffness [Unknown]
  - Synovitis [Unknown]
  - Blood creatine decreased [Unknown]
  - Arthralgia [Unknown]

NARRATIVE: CASE EVENT DATE: 20180324
